FAERS Safety Report 5665092-0 (Version None)
Quarter: 2008Q1

REPORT INFORMATION
  Report Type: 
  Country: None (occurrence: None)
  Receive Date: 20080314
  Receipt Date: 20080311
  Transmission Date: 20080703
  Serious: Yes (Death)
  Sender: FDA-Public Use
  Company Number: AU-BOEHRINGER INGELHEIM GMBH, GERMANY-2008-BP-03654AU

PATIENT
  Sex: Male

DRUGS (2)
  1. ASPIRIN AND DIPYRIDAMOLE [Suspect]
     Indication: ADVERSE EVENT
     Route: 048
  2. CLOPIDOGREL [Concomitant]
     Indication: ADVERSE EVENT

REACTIONS (1)
  - CEREBROVASCULAR ACCIDENT [None]
